FAERS Safety Report 9125919 (Version 1)
Quarter: 2013Q1

REPORT INFORMATION
  Report Type: Spontaneous
  Country: US (occurrence: US)
  Receive Date: 20130121
  Receipt Date: 20130121
  Transmission Date: 20140127
  Serious: No
  Sender: FDA-Public Use
  Company Number: US-PFIZER INC-2013024443

PATIENT
  Age: 42 Year
  Sex: Male
  Weight: 108 kg

DRUGS (4)
  1. LYRICA [Suspect]
     Indication: POST LUMBAR PUNCTURE SYNDROME
     Dosage: 150 MG, 4X/DAY
     Dates: start: 201203, end: 201301
  2. LYRICA [Suspect]
     Dosage: 75 MG, 3X/DAY
     Dates: start: 201301, end: 20130117
  3. LYRICA [Suspect]
     Dosage: 75 MG, 2X/DAY
     Dates: start: 20130117
  4. DILAUDID [Concomitant]
     Indication: BACK DISORDER
     Dosage: 24 MG, EVERY 4 HRS

REACTIONS (2)
  - Drug ineffective [Not Recovered/Not Resolved]
  - Intentional drug misuse [Unknown]
